FAERS Safety Report 8949151 (Version 1)
Quarter: 2012Q4

REPORT INFORMATION
  Report Type: 
  Country: JP (occurrence: JP)
  Receive Date: 20121206
  Receipt Date: 20121206
  Transmission Date: 20130627
  Serious: Yes (Death, Hospitalization)
  Sender: FDA-Public Use
  Company Number: JP-SHIRE-ALL1-2012-06114

PATIENT
  Age: 67 Year
  Sex: Female

DRUGS (13)
  1. 405 (LANTHANUM CARBONATE) [Suspect]
     Indication: HYPERPHOSPHATAEMIA
     Dosage: 750 mg, Other(daily dose)
     Route: 048
     Dates: start: 20100913
  2. PHOSBLOCK [Concomitant]
     Indication: HYPERPHOSPHATAEMIA
     Dosage: 2250 mg, Unknown
     Route: 048
     Dates: start: 20081117, end: 20120507
  3. OXAROL [Concomitant]
     Indication: PRODUCT USED FOR UNKNOWN INDICATION
     Dosage: 7.5 g, 1x/week
     Route: 042
     Dates: start: 20090629
  4. OMEPRAL /00661201/ [Concomitant]
     Indication: PRODUCT USED FOR UNKNOWN INDICATION
     Dosage: 20 mg, Unknown
     Route: 048
     Dates: start: 20080519
  5. LASIX                              /00032601/ [Concomitant]
     Indication: PRODUCT USED FOR UNKNOWN INDICATION
     Dosage: 80 mg, Unknown
     Route: 048
  6. ZYLORIC [Concomitant]
     Indication: PRODUCT USED FOR UNKNOWN INDICATION
     Dosage: 50 mg, Unknown
     Route: 048
  7. GLIMICRON [Concomitant]
     Indication: PRODUCT USED FOR UNKNOWN INDICATION
     Dosage: 10 mg, Unknown
     Route: 048
  8. NORVASC [Concomitant]
     Indication: PRODUCT USED FOR UNKNOWN INDICATION
     Dosage: 5 mg, Unknown
     Route: 048
  9. MICARDIS [Concomitant]
     Indication: PRODUCT USED FOR UNKNOWN INDICATION
     Dosage: 80 mg, Unknown
     Route: 048
  10. BAYASPIRIN [Concomitant]
     Indication: PRODUCT USED FOR UNKNOWN INDICATION
     Dosage: 100 mg, Unknown
     Route: 048
  11. SIGMART [Concomitant]
     Indication: PRODUCT USED FOR UNKNOWN INDICATION
     Dosage: 20 mg, Unknown
     Route: 048
  12. PLETAAL [Concomitant]
     Indication: PRODUCT USED FOR UNKNOWN INDICATION
     Dosage: 200 mg, Unknown
     Route: 048
  13. EPOGIN [Concomitant]
     Indication: PRODUCT USED FOR UNKNOWN INDICATION
     Dosage: 1500 IU, Unknown
     Route: 042

REACTIONS (5)
  - Brain oedema [Fatal]
  - Subdural haematoma [Fatal]
  - Shunt stenosis [Recovering/Resolving]
  - Atrioventricular block complete [Recovered/Resolved]
  - Fall [Recovered/Resolved]
